FAERS Safety Report 9393754 (Version 1)
Quarter: 2013Q3

REPORT INFORMATION
  Report Type: Spontaneous
  Country: FR (occurrence: None)
  Receive Date: 20130705
  Receipt Date: 20130705
  Transmission Date: 20140515
  Serious: Yes (Hospitalization)
  Sender: FDA-Public Use
  Company Number: IPC201306-000250

PATIENT
  Age: 58 Year
  Sex: Male

DRUGS (1)
  1. METFORMIN HYDROCHLORIDE [Suspect]

REACTIONS (11)
  - Metabolic acidosis [None]
  - Loss of consciousness [None]
  - Toxicity to various agents [None]
  - Renal impairment [None]
  - Coagulation factor decreased [None]
  - Blood creatinine increased [None]
  - Alanine aminotransferase increased [None]
  - Aspartate aminotransferase increased [None]
  - Continuous haemodiafiltration [None]
  - Lactic acidosis [None]
  - Incorrect dose administered [None]
